FAERS Safety Report 8400512-X (Version None)
Quarter: 2012Q2

REPORT INFORMATION
  Report Type: 
  Country: None (occurrence: None)
  Receive Date: 20120531
  Receipt Date: 20120521
  Transmission Date: 20120825
  Serious: Yes (Hospitalization)
  Sender: FDA-Public Use
  Company Number: JP-ROCHE-726177

PATIENT
  Sex: Female

DRUGS (52)
  1. PREDNISOLONE [Suspect]
     Route: 048
     Dates: start: 20110207, end: 20110627
  2. HOKUNALIN [Concomitant]
     Dosage: FORM TAPE
     Route: 062
  3. MICARDIS [Concomitant]
     Dates: start: 20091119, end: 20100115
  4. ACTEMRA [Suspect]
     Route: 041
     Dates: start: 20110221, end: 20110322
  5. ACTEMRA [Suspect]
     Route: 041
     Dates: start: 20110404, end: 20110404
  6. PREDNISOLONE [Suspect]
     Route: 048
     Dates: start: 20100726, end: 20100822
  7. MUCODYNE [Concomitant]
     Dosage: FORM: PERORAL AGENT
     Route: 048
  8. ACTEMRA [Suspect]
     Indication: CASTLEMAN'S DISEASE
     Route: 041
     Dates: start: 20100318, end: 20100318
  9. ACTEMRA [Suspect]
     Route: 041
     Dates: start: 20101101, end: 20101115
  10. ACTEMRA [Suspect]
     Route: 041
     Dates: start: 20110124, end: 20110124
  11. ACTEMRA [Suspect]
     Route: 041
     Dates: start: 20110207, end: 20110207
  12. ACTEMRA [Suspect]
     Route: 041
     Dates: start: 20110418, end: 20110822
  13. METHYLPREDNISOLONE SODIUM SUCCINATE [Suspect]
     Indication: CASTLEMAN'S DISEASE
     Route: 042
     Dates: start: 20091121, end: 20091123
  14. ALENDRONATE SODIUM [Concomitant]
     Route: 048
  15. ACTEMRA [Suspect]
     Route: 041
     Dates: start: 20101227, end: 20101227
  16. ACTEMRA [Suspect]
     Route: 041
     Dates: start: 20111114, end: 20111114
  17. PREDNISOLONE [Suspect]
     Indication: CASTLEMAN'S DISEASE
     Route: 048
     Dates: start: 20091124, end: 20091207
  18. PREDNISOLONE [Suspect]
     Route: 048
     Dates: start: 20091208, end: 20091214
  19. PREDNISOLONE [Suspect]
     Route: 048
     Dates: start: 20100712, end: 20100725
  20. PREDNISOLONE [Suspect]
     Route: 048
     Dates: start: 20100823, end: 20101003
  21. MEDICON [Concomitant]
     Dosage: FORM: PERORAL AGENT
     Route: 048
     Dates: start: 20100210, end: 20100414
  22. ACTEMRA [Suspect]
     Route: 041
     Dates: start: 20100427, end: 20100427
  23. ACTEMRA [Suspect]
     Route: 041
     Dates: start: 20100628, end: 20100809
  24. PREDNISOLONE [Suspect]
     Route: 048
     Dates: start: 20100202, end: 20100414
  25. PREDNISOLONE [Suspect]
     Route: 048
     Dates: start: 20100415, end: 20100425
  26. PREDNISOLONE [Suspect]
     Route: 048
     Dates: start: 20100426, end: 20100510
  27. FUNGIZONE [Concomitant]
     Route: 048
  28. LEVOTHYROXINE SODIUM [Concomitant]
     Route: 048
  29. ALENDRONATE SODIUM [Concomitant]
     Route: 048
  30. MICARDIS [Concomitant]
  31. BACTRIM [Concomitant]
  32. ACTEMRA [Suspect]
     Route: 041
     Dates: start: 20100511, end: 20100608
  33. ACTEMRA [Suspect]
     Route: 041
     Dates: start: 20101213, end: 20101213
  34. ACTEMRA [Suspect]
     Route: 041
  35. PREDNISOLONE [Suspect]
     Route: 048
     Dates: start: 20091215, end: 20091221
  36. PREDNISOLONE [Suspect]
     Route: 048
     Dates: start: 20091222, end: 20100115
  37. PREDNISOLONE [Suspect]
     Route: 048
     Dates: start: 20100628, end: 20100711
  38. LEVOTHYROXINE SODIUM [Concomitant]
     Dosage: FORM: PERORAL AGENT
     Route: 048
     Dates: start: 20100726, end: 20101128
  39. ACTEMRA [Suspect]
     Route: 041
     Dates: start: 20100401, end: 20100415
  40. ACTEMRA [Suspect]
     Route: 041
     Dates: start: 20100823, end: 20100921
  41. ACTEMRA [Suspect]
     Route: 041
     Dates: start: 20101129, end: 20101129
  42. ACTEMRA [Suspect]
     Route: 041
     Dates: start: 20110111, end: 20110111
  43. ACTEMRA [Suspect]
     Route: 041
     Dates: start: 20110905, end: 20111003
  44. ACTEMRA [Suspect]
     Route: 041
     Dates: start: 20111017, end: 20111017
  45. PREDNISOLONE [Suspect]
     Route: 048
     Dates: start: 20110628
  46. ACTEMRA [Suspect]
     Route: 041
     Dates: start: 20101004, end: 20101018
  47. PREDNISOLONE [Suspect]
     Route: 048
     Dates: start: 20100511, end: 20100627
  48. PREDNISOLONE [Suspect]
     Route: 048
     Dates: start: 20101004, end: 20101006
  49. ASPIRIN [Concomitant]
     Route: 048
  50. FAMOTIDINE [Concomitant]
     Route: 048
     Dates: start: 20091119, end: 20100115
  51. FAMOTIDINE [Concomitant]
     Route: 048
  52. LIPITOR [Concomitant]
     Route: 048

REACTIONS (6)
  - LYMPHADENOPATHY [None]
  - LEUKOCYTOSIS [None]
  - INTERSTITIAL LUNG DISEASE [None]
  - COUGH [None]
  - SUBSTANCE-INDUCED PSYCHOTIC DISORDER [None]
  - SEASONAL ALLERGY [None]
